FAERS Safety Report 10097180 (Version 1)
Quarter: 2014Q2

REPORT INFORMATION
  Report Type: Spontaneous
  Country: US (occurrence: US)
  Receive Date: 20140422
  Receipt Date: 20140422
  Transmission Date: 20141212
  Serious: Yes (Other)
  Sender: FDA-Public Use
  Company Number: US-ABBVIE-14P-163-1226401-00

PATIENT
  Age: 63 Year
  Sex: Male

DRUGS (2)
  1. ANDROGEL [Suspect]
     Indication: BLOOD TESTOSTERONE DECREASED
     Dates: start: 2006, end: 2014
  2. TESTIM [Concomitant]
     Indication: PRODUCT USED FOR UNKNOWN INDICATION

REACTIONS (6)
  - Cerebrovascular accident [Unknown]
  - Physical disability [Unknown]
  - Emotional distress [Unknown]
  - Impaired work ability [Unknown]
  - Emotional distress [Unknown]
  - Emotional distress [Unknown]
